FAERS Safety Report 9118738 (Version 1)
Quarter: 2013Q1

REPORT INFORMATION
  Report Type: Spontaneous
  Country: CA (occurrence: CA)
  Receive Date: 20130226
  Receipt Date: 20130226
  Transmission Date: 20140127
  Serious: Yes (Death, Hospitalization, Other)
  Sender: FDA-Public Use
  Company Number: PHHY2013CA013814

PATIENT
  Sex: Male

DRUGS (1)
  1. SANDOSTATIN [Suspect]
     Indication: NEUROENDOCRINE TUMOUR
     Dosage: 50 UG, ONCE (TEST DOSE)
     Route: 058
     Dates: start: 20130123, end: 20130123

REACTIONS (2)
  - Death [Fatal]
  - Malignant neoplasm progression [Unknown]
